FAERS Safety Report 14955293 (Version 1)
Quarter: 2018Q2

REPORT INFORMATION
  Report Type: Spontaneous
  Country: FR (occurrence: FR)
  Receive Date: 20180531
  Receipt Date: 20180531
  Transmission Date: 20180711
  Serious: Yes (Hospitalization)
  Sender: FDA-Public Use
  Company Number: FR-COLGATE PALMOLIVE COMPANY-20180501226

PATIENT

DRUGS (4)
  1. CHLORHEXIDINE UNSPECIFIED [Suspect]
     Active Substance: CHLORHEXIDINE
     Indication: CRYOGLOBULINAEMIA
     Dosage: 3, 1 PER DAY
     Route: 065
  2. PREDNISOLONE. [Suspect]
     Active Substance: PREDNISOLONE
     Indication: CRYOGLOBULINAEMIA
     Dosage: 0.5 MILLIGRAM/KILOGRAM
     Route: 065
  3. RITUXIMAB. [Suspect]
     Active Substance: RITUXIMAB
     Indication: CRYOGLOBULINAEMIA
     Route: 065
  4. METHYLPREDNISOLONE. [Suspect]
     Active Substance: METHYLPREDNISOLONE
     Indication: CRYOGLOBULINAEMIA
     Dosage: 1 GRAM
     Route: 065

REACTIONS (9)
  - Acute kidney injury [Unknown]
  - Staphylococcal sepsis [Unknown]
  - Endocarditis [Unknown]
  - Renal vasculitis [Unknown]
  - Dyspnoea [Unknown]
  - Generalised oedema [Unknown]
  - Pyrexia [Unknown]
  - Bacteraemia [Recovered/Resolved]
  - Left ventricular dysfunction [Unknown]
